FAERS Safety Report 9197177 (Version 2)
Quarter: 2013Q2

REPORT INFORMATION
  Report Type: Spontaneous
  Country: US (occurrence: US)
  Receive Date: 20130328
  Receipt Date: 20130429
  Transmission Date: 20140414
  Serious: Yes (Congenital Anomaly, Other)
  Sender: FDA-Public Use
  Company Number: US-PFIZER INC-2013098897

PATIENT
  Sex: Male

DRUGS (2)
  1. ZOLOFT [Suspect]
     Dosage: UNK
     Route: 064
     Dates: start: 199903, end: 199908
  2. ZOLOFT [Suspect]
     Dosage: UNK
     Route: 064
     Dates: start: 2002, end: 2004

REACTIONS (7)
  - Maternal exposure during pregnancy [Unknown]
  - Talipes [Unknown]
  - Pulmonary hypoplasia [Unknown]
  - Congenital jaw malformation [Unknown]
  - Pneumothorax [Unknown]
  - Congenital multiplex arthrogryposis [Unknown]
  - Congenital inguinal hernia [Unknown]
